FAERS Safety Report 10994157 (Version 1)
Quarter: 2015Q2

REPORT INFORMATION
  Report Type: Spontaneous
  Country: US (occurrence: US)
  Receive Date: 20150407
  Receipt Date: 20150407
  Transmission Date: 20150821
  Serious: No
  Sender: FDA-Public Use
  Company Number: US-BAYER-2015-074927

PATIENT
  Age: 48 Year
  Sex: Female

DRUGS (2)
  1. GADAVIST [Suspect]
     Active Substance: GADOBUTROL
     Indication: X-RAY LIMB ABNORMAL
     Dosage: 8.5 ML, ONCE
     Route: 042
     Dates: start: 20150326, end: 20150326
  2. GADAVIST [Suspect]
     Active Substance: GADOBUTROL
     Indication: PAIN

REACTIONS (2)
  - Product use issue [None]
  - Erythema [None]

NARRATIVE: CASE EVENT DATE: 20150326
